FAERS Safety Report 15440491 (Version 1)
Quarter: 2018Q3

REPORT INFORMATION
  Report Type: Spontaneous
  Country: US (occurrence: US)
  Receive Date: 20180928
  Receipt Date: 20180928
  Transmission Date: 20181010
  Serious: No
  Sender: FDA-Public Use
  Company Number: US-PFIZER INC-2018388233

PATIENT
  Age: 67 Year
  Sex: Male
  Weight: 95.71 kg

DRUGS (3)
  1. METFORMIN [Concomitant]
     Active Substance: METFORMIN HYDROCHLORIDE
     Indication: DIABETES MELLITUS
     Dosage: UNK
  2. MIRAPEX [Concomitant]
     Active Substance: PRAMIPEXOLE DIHYDROCHLORIDE
     Indication: RESTLESS LEGS SYNDROME
     Dosage: UNK
  3. VFEND [Suspect]
     Active Substance: VORICONAZOLE
     Indication: PULMONARY MYCOSIS
     Dosage: 200 MG, 2X/DAY(MORNING AND NIGHT, TWO TIMES)
     Route: 048

REACTIONS (6)
  - Burning sensation [Unknown]
  - Blister [Unknown]
  - Pain [Unknown]
  - Diarrhoea [Unknown]
  - Generalised erythema [Unknown]
  - Hypersensitivity [Unknown]
